FAERS Safety Report 13928478 (Version 1)
Quarter: 2017Q3

REPORT INFORMATION
  Report Type: Spontaneous
  Country: US (occurrence: None)
  Receive Date: 20170831
  Receipt Date: 20170831
  Transmission Date: 20171127
  Serious: Yes (Hospitalization)
  Sender: FDA-Public Use
  Company Number: None

PATIENT
  Age: 61 Year
  Sex: Male

DRUGS (10)
  1. MAGNESIUM-OX [Concomitant]
  2. ZINC SULFATE [Concomitant]
     Active Substance: ZINC SULFATE\ZINC SULFATE ANHYDROUS
  3. AMLODIPINE [Concomitant]
     Active Substance: AMLODIPINE BESYLATE
  4. IBANDRONATE [Concomitant]
     Active Substance: IBANDRONATE SODIUM
  5. POT CL MICRO [Concomitant]
  6. STELARA [Suspect]
     Active Substance: USTEKINUMAB
     Indication: CROHN^S DISEASE
     Dosage: 90MG Q2WKS SC
     Route: 058
     Dates: start: 20170425
  7. PANTOPRAZOLE [Concomitant]
     Active Substance: PANTOPRAZOLE
  8. CALCITRIOL. [Concomitant]
     Active Substance: CALCITRIOL
  9. POTASSIUM [Concomitant]
     Active Substance: POTASSIUM
  10. ALPRAZOLAM. [Concomitant]
     Active Substance: ALPRAZOLAM

REACTIONS (3)
  - Blood electrolytes decreased [None]
  - Nausea [None]
  - Crohn^s disease [None]

NARRATIVE: CASE EVENT DATE: 20170802
